FAERS Safety Report 15585421 (Version 3)
Quarter: 2018Q4

REPORT INFORMATION
  Report Type: Report from Study
  Country: US (occurrence: US)
  Receive Date: 20181102
  Receipt Date: 20181223
  Transmission Date: 20190205
  Serious: Yes (Death, Hospitalization)
  Sender: FDA-Public Use
  Company Number: US-ACTELION-A-US2018-179448

PATIENT
  Age: 78 Year
  Sex: Male
  Weight: 63.49 kg

DRUGS (7)
  1. CILOSTAZOL. [Concomitant]
     Active Substance: CILOSTAZOL
     Dosage: 100 MG, QD
  2. LIPITOR [Concomitant]
     Active Substance: ATORVASTATIN CALCIUM
     Dosage: 40 MG, QD
  3. FLUOXETINE [Concomitant]
     Active Substance: FLUOXETINE HYDROCHLORIDE
     Dosage: 10 MG, QD
  4. SINGULAIR [Concomitant]
     Active Substance: MONTELUKAST SODIUM
     Dosage: 10 MG, QD
  5. PROTONIX [Concomitant]
     Active Substance: PANTOPRAZOLE SODIUM
     Dosage: 40 MG, QD
  6. OPSUMIT [Suspect]
     Active Substance: MACITENTAN
     Indication: PULMONARY ARTERIAL HYPERTENSION
     Dosage: 10 MG, QD
     Route: 048
     Dates: start: 201808, end: 20181110
  7. DILTIAZEM. [Concomitant]
     Active Substance: DILTIAZEM
     Dosage: 300 MG, QD

REACTIONS (24)
  - Epistaxis [Unknown]
  - Diarrhoea [Unknown]
  - Dysphonia [Unknown]
  - Unevaluable event [Unknown]
  - Asthenia [Unknown]
  - Deafness unilateral [Unknown]
  - Fluid retention [Unknown]
  - Death [Fatal]
  - Condition aggravated [Unknown]
  - Muscular weakness [Unknown]
  - Mobility decreased [Unknown]
  - Anaemia [Unknown]
  - Choking [Unknown]
  - Therapy non-responder [Unknown]
  - Dizziness [Unknown]
  - Eating disorder [Unknown]
  - Gastrointestinal haemorrhage [Unknown]
  - Dyspnoea [Unknown]
  - Fatigue [Unknown]
  - Discomfort [Unknown]
  - Secretion discharge [Unknown]
  - Decreased appetite [Unknown]
  - Nausea [Unknown]
  - General physical condition decreased [Unknown]

NARRATIVE: CASE EVENT DATE: 2018
